FAERS Safety Report 17568048 (Version 1)
Quarter: 2020Q1

REPORT INFORMATION
  Report Type: Spontaneous
  Country: US (occurrence: US)
  Receive Date: 20200320
  Receipt Date: 20200320
  Transmission Date: 20200409
  Serious: No
  Sender: FDA-Public Use
  Company Number: US-MATRIXX INITIATIVES, INC.-2081834

PATIENT
  Sex: Male

DRUGS (1)
  1. ZICAM COLD REMEDY NASAL SPRAY [Suspect]
     Active Substance: HOMEOPATHICS
     Indication: NASOPHARYNGITIS
     Route: 045

REACTIONS (2)
  - Ageusia [None]
  - Anosmia [None]
